FAERS Safety Report 12888959 (Version 1)
Quarter: 2016Q4

REPORT INFORMATION
  Report Type: Spontaneous
  Country: BR (occurrence: BR)
  Receive Date: 20161027
  Receipt Date: 20161027
  Transmission Date: 20170207
  Serious: Yes (Other)
  Sender: FDA-Public Use
  Company Number: BR-PFIZER INC-2016494155

PATIENT
  Age: 81 Year
  Sex: Female
  Weight: 53.5 kg

DRUGS (2)
  1. XALATAN [Suspect]
     Active Substance: LATANOPROST
     Indication: INTRAOCULAR PRESSURE INCREASED
     Dosage: 1 DROP AT NIGHT IN EACH EYE
     Route: 047
     Dates: start: 2016
  2. BETOPTIC [Suspect]
     Active Substance: BETAXOLOL HYDROCHLORIDE

REACTIONS (2)
  - Cataract [Unknown]
  - Visual acuity reduced [Recovering/Resolving]

NARRATIVE: CASE EVENT DATE: 2016
